FAERS Safety Report 4914260-1 (Version None)
Quarter: 2006Q1

REPORT INFORMATION
  Report Type: 
  Country: None (occurrence: None)
  Receive Date: 20060213
  Receipt Date: 20060203
  Transmission Date: 20060701
  Serious: Yes (Death)
  Sender: FDA-Public Use
  Company Number: DEWYE245819DEC05

PATIENT
  Age: 27 Year
  Sex: Female

DRUGS (4)
  1. VENLAFAXINE HCL [Suspect]
     Indication: ALCOHOLISM
     Dosage: 18 TABLETS 37.5 MG EACH (OVERDOSE AMOUNT 675 MG) ORAL;  ORAL
     Route: 048
     Dates: start: 20051201, end: 20051201
  2. VENLAFAXINE HCL [Suspect]
     Indication: ALCOHOLISM
     Dosage: 18 TABLETS 37.5 MG EACH (OVERDOSE AMOUNT 675 MG) ORAL;  ORAL
     Route: 048
     Dates: start: 20051201, end: 20051201
  3. LAMICTAL [Concomitant]
  4. TOPAMAX [Concomitant]

REACTIONS (4)
  - ALCOHOL USE [None]
  - MULTIPLE DRUG OVERDOSE INTENTIONAL [None]
  - REFUSAL OF TREATMENT BY PATIENT [None]
  - RESPIRATORY ARREST [None]
